FAERS Safety Report 25056525 (Version 1)
Quarter: 2025Q1

REPORT INFORMATION
  Report Type: Spontaneous
  Country: US (occurrence: US)
  Receive Date: 20250310
  Receipt Date: 20250310
  Transmission Date: 20250409
  Serious: No
  Sender: JOHNSON AND JOHNSON
  Company Number: US-JNJFOC-20250244089

PATIENT
  Age: 77 Year
  Sex: Male

DRUGS (2)
  1. TREMFYA [Suspect]
     Active Substance: GUSELKUMAB
     Indication: Arthritis
     Dates: start: 20250213, end: 20250213
  2. TREMFYA [Suspect]
     Active Substance: GUSELKUMAB
     Dates: start: 20250213, end: 20250213

REACTIONS (7)
  - Device issue [Unknown]
  - Product label issue [Unknown]
  - Device leakage [Unknown]
  - Product quality issue [Unknown]
  - Device malfunction [Unknown]
  - Product dose omission issue [Unknown]
  - Device issue [Unknown]

NARRATIVE: CASE EVENT DATE: 20250213
